FAERS Safety Report 6934976-5 (Version None)
Quarter: 2010Q3

REPORT INFORMATION
  Report Type: 
  Country: None (occurrence: None)
  Receive Date: 20100822
  Receipt Date: 20100822
  Transmission Date: 20110219
  Serious: Yes (Hospitalization)
  Sender: FDA-Public Use
  Company Number: BR-ABBOTT-10P-020-0658182-00

PATIENT
  Sex: Female
  Weight: 63 kg

DRUGS (16)
  1. HUMIRA [Suspect]
     Indication: RHEUMATOID ARTHRITIS
     Route: 058
     Dates: start: 20070518
  2. KETOPROFEN [Suspect]
     Indication: PRODUCT USED FOR UNKNOWN INDICATION
     Dates: start: 20070101
  3. METHOTREXATE [Suspect]
     Indication: PRODUCT USED FOR UNKNOWN INDICATION
  4. LEFLUNOMIDE [Concomitant]
     Indication: RHEUMATOID ARTHRITIS
     Route: 048
  5. PREDNISONE [Concomitant]
     Indication: RHEUMATOID ARTHRITIS
     Route: 048
  6. NIMESULIDE [Concomitant]
     Indication: RHEUMATOID ARTHRITIS
     Route: 048
  7. KETOPROFEN [Concomitant]
     Indication: RHEUMATOID ARTHRITIS
     Route: 048
  8. FOLIC ACID [Concomitant]
     Indication: PRODUCT USED FOR UNKNOWN INDICATION
     Route: 048
  9. THIAMINE HCL [Concomitant]
     Indication: PRODUCT USED FOR UNKNOWN INDICATION
     Route: 048
  10. RISEDRONATE SODIUM [Concomitant]
     Indication: OSTEOPENIA
     Route: 048
  11. METHOTREXATE [Concomitant]
     Indication: RHEUMATOID ARTHRITIS
     Route: 048
     Dates: end: 20100301
  12. METHOTREXATE [Concomitant]
     Route: 048
     Dates: start: 20100701
  13. OMEPRAZOLE [Concomitant]
     Indication: PROPHYLAXIS AGAINST GASTROINTESTINAL ULCER
     Route: 048
  14. OMEPRAZOLE [Concomitant]
     Route: 048
  15. MARINE POLYUNSATURATED FATTY ACIDS [Concomitant]
     Indication: PRODUCT USED FOR UNKNOWN INDICATION
     Route: 048
  16. GLUCOSAMINE SULFATE [Concomitant]
     Indication: BONE DISORDER
     Route: 048

REACTIONS (19)
  - ABDOMINAL PAIN UPPER [None]
  - ARTHRITIS [None]
  - CORNEAL DYSTROPHY [None]
  - ERYTHEMA [None]
  - FORMICATION [None]
  - GENERALISED ERYTHEMA [None]
  - HAND DEFORMITY [None]
  - HEPATOMEGALY [None]
  - HIP ARTHROPLASTY [None]
  - JOINT PROSTHESIS USER [None]
  - LIVER DISORDER [None]
  - MUSCULAR WEAKNESS [None]
  - OEDEMA PERIPHERAL [None]
  - OSTEOARTHRITIS [None]
  - OSTEOPENIA [None]
  - PAIN IN EXTREMITY [None]
  - PRURITUS [None]
  - PRURITUS GENERALISED [None]
  - VISUAL ACUITY REDUCED [None]
